FAERS Safety Report 8859396 (Version 3)
Quarter: 2013Q1

REPORT INFORMATION
  Report Type: Spontaneous
  Country: DE (occurrence: None)
  Receive Date: 20121022
  Receipt Date: 20121203
  Transmission Date: 20140127
  Serious: Yes (Other)
  Sender: FDA-Public Use
  Company Number: 7168344

PATIENT
  Age: 74 Year
  Sex: Female

DRUGS (3)
  1. EUTHYROX [Suspect]
     Indication: HYPOTHYROIDISM
     Dosage: 100 OR 125 MCG (1 IN 1 D) ORAL
     Dates: start: 1997, end: 20121016
  2. CANDESARTAN (CANDESARTAN) [Concomitant]
  3. ALENDRON BETA (ALENDRONATE SODIUM) [Concomitant]

REACTIONS (1)
  - Hypertensive crisis [None]
